FAERS Safety Report 25940864 (Version 1)
Quarter: 2025Q4

REPORT INFORMATION
  Report Type: Spontaneous
  Country: EU (occurrence: EU)
  Receive Date: 20251020
  Receipt Date: 20251020
  Transmission Date: 20260118
  Serious: Yes (Death, Other)
  Sender: INCYTE
  Company Number: EU-EVENT-004703

PATIENT

DRUGS (1)
  1. PEMAZYRE [Suspect]
     Active Substance: PEMIGATINIB
     Indication: Cholangiocarcinoma
     Dosage: 13.5 MILLIGRAM
     Route: 065

REACTIONS (2)
  - Cholangiocarcinoma [Fatal]
  - Disease progression [Fatal]
